FAERS Safety Report 7273651-7 (Version None)
Quarter: 2011Q1

REPORT INFORMATION
  Report Type: 
  Country: None (occurrence: None)
  Receive Date: 20110203
  Receipt Date: 20110118
  Transmission Date: 20110831
  Serious: Yes (Disabling)
  Sender: FDA-Public Use
  Company Number: DK-BAYER-200927399GPV

PATIENT
  Sex: Female
  Weight: 49 kg

DRUGS (5)
  1. MAGNEVIST [Suspect]
  2. MAGNEVIST [Suspect]
     Dosage: 15 ML (DAILY DOSE), ONCE,
     Dates: start: 20050509, end: 20050509
  3. GADOVIST [Suspect]
     Indication: SCAN WITH CONTRAST
     Dosage: 5 ML (DAILY DOSE), ONCE, INTRAVENOUS
     Route: 042
     Dates: start: 20080131, end: 20080131
  4. MAGNEVIST [Suspect]
     Indication: SCAN WITH CONTRAST
     Dosage: 15 ML (DAILY DOSE), ONCE, INTRAVENOUS
     Route: 042
     Dates: start: 20070125, end: 20070125
  5. UNCODEABLE ^UNCLASSIFIABLE^ [Suspect]
     Indication: SCAN WITH CONTRAST
     Dosage: UNK
     Route: 042
     Dates: start: 20060428

REACTIONS (5)
  - BLISTER [None]
  - NEPHROGENIC SYSTEMIC FIBROSIS [None]
  - ECZEMA [None]
  - ARTHROPATHY [None]
  - ACQUIRED PORPHYRIA [None]
